FAERS Safety Report 18223967 (Version 6)
Quarter: 2020Q4

REPORT INFORMATION
  Report Type: Report from Study
  Country: BE (occurrence: BE)
  Receive Date: 20200902
  Receipt Date: 20201218
  Transmission Date: 20210113
  Serious: Yes (Life-Threatening, Hospitalization, Other)
  Sender: FDA-Public Use
  Company Number: BE-BRISTOL-MYERS SQUIBB COMPANY-BMS-2020-069289

PATIENT
  Age: 62 Year
  Sex: Female

DRUGS (8)
  1. NIVOLUMAB [Suspect]
     Active Substance: NIVOLUMAB
     Indication: BREAST CANCER METASTATIC
     Dosage: 360 MILLIGRAM, Q3WK
     Route: 042
     Dates: start: 20190219, end: 20200818
  2. DAFALGAN [Concomitant]
     Active Substance: ACETAMINOPHEN
     Indication: ABDOMINAL PAIN
     Dosage: 1 GRAM
     Route: 065
     Dates: start: 20181003
  3. VITAPANTOL [Concomitant]
     Indication: NASAL DRYNESS
     Dosage: UNK
     Route: 065
     Dates: start: 20190521
  4. BEMPEGALDESLEUKIN [Suspect]
     Active Substance: BEMPEGALDESLEUKIN
     Indication: BREAST CANCER METASTATIC
     Dosage: 0.354 MILLIGRAM, Q3WK
     Route: 042
     Dates: start: 20190219, end: 20200818
  5. TEMESTA [LORAZEPAM] [Concomitant]
     Active Substance: LORAZEPAM
     Indication: INSOMNIA
     Dosage: 0.5 MILLIGRAM
     Route: 065
     Dates: start: 20190917
  6. LITICAN [ALIZAPRIDE] [Concomitant]
     Indication: NAUSEA
     Dosage: 50 MILLIGRAM
     Route: 065
     Dates: start: 20181003
  7. STEOVIT D3 [Concomitant]
     Active Substance: CALCIUM CARBONATE\CHOLECALCIFEROL
     Indication: OSTEOPOROSIS PROPHYLAXIS
     Dosage: 1000 MICROGRAM
     Route: 065
     Dates: start: 20181206
  8. PROZAC [Concomitant]
     Active Substance: FLUOXETINE HYDROCHLORIDE
     Indication: DEPRESSION
     Dosage: 20 MILLIGRAM
     Route: 065
     Dates: start: 20180830

REACTIONS (1)
  - Embolic stroke [Recovered/Resolved]

NARRATIVE: CASE EVENT DATE: 20200824
